FAERS Safety Report 13215950 (Version 1)
Quarter: 2017Q1

REPORT INFORMATION
  Report Type: Spontaneous
  Country: US (occurrence: US)
  Receive Date: 20170210
  Receipt Date: 20170210
  Transmission Date: 20170428
  Serious: Yes (Other)
  Sender: FDA-Public Use
  Company Number: US-ROCHE-1803484

PATIENT
  Age: 66 Year
  Sex: Male
  Weight: 102.6 kg

DRUGS (3)
  1. ALBUTEROL. [Concomitant]
     Active Substance: ALBUTEROL
     Indication: ASTHMA
     Dosage: 2 PUFF INHALED (STARTED BEFORE 13/JUL/2010) 14 HRS PRN
     Route: 065
  2. XOLAIR [Suspect]
     Active Substance: OMALIZUMAB
     Indication: ASTHMA
     Route: 058
     Dates: start: 20101110
  3. SYMBICORT [Concomitant]
     Active Substance: BUDESONIDE\FORMOTEROL FUMARATE DIHYDRATE
     Indication: ASTHMA
     Dosage: 2 PUFF INHALED (STARTED BEFORE 13/JUL/2010)
     Route: 065

REACTIONS (1)
  - Papillary cystadenoma lymphomatosum [Recovered/Resolved]

NARRATIVE: CASE EVENT DATE: 2015
